FAERS Safety Report 15001116 (Version 1)
Quarter: 2018Q2

REPORT INFORMATION
  Report Type: Spontaneous
  Country: IN (occurrence: IN)
  Receive Date: 20180612
  Receipt Date: 20180612
  Transmission Date: 20180711
  Serious: Yes (Hospitalization, Other)
  Sender: FDA-Public Use
  Company Number: IN-BAYER-2018-106881

PATIENT
  Age: 26 Year
  Sex: Male

DRUGS (1)
  1. BAYCIP 500 MG [Suspect]
     Active Substance: CIPROFLOXACIN
     Indication: HELICOBACTER INFECTION
     Dosage: 500 MG, BID
     Dates: start: 201606, end: 20160612

REACTIONS (5)
  - Neuropathy peripheral [Not Recovered/Not Resolved]
  - Drug hypersensitivity [Not Recovered/Not Resolved]
  - Tendon injury [Not Recovered/Not Resolved]
  - Muscular weakness [Not Recovered/Not Resolved]
  - Gastrointestinal pain [Not Recovered/Not Resolved]

NARRATIVE: CASE EVENT DATE: 20160602
